FAERS Safety Report 4801677-9 (Version None)
Quarter: 2005Q4

REPORT INFORMATION
  Report Type: 
  Country: None (occurrence: None)
  Receive Date: 20051018
  Receipt Date: 20050815
  Transmission Date: 20060501
  Serious: Yes (Hospitalization, Other)
  Sender: FDA-Public Use
  Company Number: US-GLAXOSMITHKLINE-A0570230A

PATIENT
  Age: 32 Year
  Sex: Female
  Weight: 88.6 kg

DRUGS (7)
  1. PAXIL [Suspect]
     Dosage: 30MG PER DAY
     Route: 048
     Dates: start: 20021128, end: 20050815
  2. ALEVE [Concomitant]
  3. TRAZODONE HCL [Concomitant]
  4. IBUPROFEN [Concomitant]
  5. CIPRO [Concomitant]
  6. BIRTH CONTROL PILLS [Concomitant]
  7. UNSPECIFIED MEDICATION [Concomitant]

REACTIONS (17)
  - ABSCESS ORAL [None]
  - ANKLE FRACTURE [None]
  - BRADYCARDIA [None]
  - CONVULSION [None]
  - DIZZINESS [None]
  - FALL [None]
  - HYPERSENSITIVITY [None]
  - INFLUENZA LIKE ILLNESS [None]
  - LOSS OF CONSCIOUSNESS [None]
  - MIGRAINE [None]
  - PAIN [None]
  - PARAESTHESIA [None]
  - PYREXIA [None]
  - RASH PUSTULAR [None]
  - SKIN INFECTION [None]
  - SUICIDE ATTEMPT [None]
  - SWEAT GLAND INFECTION [None]
